FAERS Safety Report 20016805 (Version 1)
Quarter: 2021Q4

REPORT INFORMATION
  Report Type: Spontaneous
  Country: US (occurrence: None)
  Receive Date: 20211105
  Receipt Date: 20211105
  Transmission Date: 20220304
  Serious: Yes (Other)
  Sender: FDA-Public Use
  Company Number: None

PATIENT
  Age: 66 Year

DRUGS (22)
  1. HIZENTRA [Suspect]
     Active Substance: HUMAN IMMUNOGLOBULIN G
     Indication: Immunodeficiency
     Dosage: FREQUENCY : TWICE A WEEK;?
     Route: 058
     Dates: start: 20200605
  2. Accolate 20mg PO BID [Concomitant]
  3. Acetaminophen 650mg PO PRN [Concomitant]
  4. Acetaminophen 500mg PO PRN [Concomitant]
  5. Albuterol HFA 108mcg Inhaled PRN [Concomitant]
  6. Alvesco 160mcg Inhaled BID [Concomitant]
  7. Aspirin 325mg PO daily [Concomitant]
  8. Benicar 40mg PO daily [Concomitant]
  9. Desipramine 25mg PO daily [Concomitant]
  10. Estradiol 0.5mg PO daily [Concomitant]
  11. Ferrous sulfate 140mg PO daily [Concomitant]
  12. FLunisolide 25mcg inhaled BID [Concomitant]
  13. Imodium AD 2mg PO PRN [Concomitant]
  14. Lactobacillus PO daily [Concomitant]
  15. Lidocaine/prilocaine topical PRN [Concomitant]
  16. Loratadine 10mg PO daily [Concomitant]
  17. Magnesium oxide 400mg PO daily [Concomitant]
  18. Nexium 40mg PO daily [Concomitant]
  19. Prednisone 20mg PO daily [Concomitant]
  20. Pulmicort 1mg/2ml inhaled PRN [Concomitant]
  21. Vitamin C 250mg PO daily [Concomitant]
  22. Vitamin D 50mcg PO daily [Concomitant]

REACTIONS (6)
  - Feeling abnormal [None]
  - Recalled product [None]
  - Therapy interrupted [None]
  - Rash [None]
  - Rash [None]
  - Dyspnoea [None]

NARRATIVE: CASE EVENT DATE: 20211029
